FAERS Safety Report 8547485 (Version 5)
Quarter: 2012Q4

REPORT INFORMATION
  Report Type: 
  Country: IE (occurrence: IE)
  Receive Date: 20120504
  Receipt Date: 20121030
  Transmission Date: 20130627
  Serious: Yes (Other)
  Sender: FDA-Public Use
  Company Number: IE-ABBOTT-12P-229-0930118-00

PATIENT
  Age: 31 Year
  Sex: Male

DRUGS (1)
  1. HUMIRA 40 MG/ 0.8 ML PRE-FILLED SYRINGE [Suspect]
     Indication: PSORIASIS
     Route: 058
     Dates: start: 201109, end: 201204

REACTIONS (4)
  - Grand mal convulsion [Recovered/Resolved]
  - Petit mal epilepsy [Recovered/Resolved]
  - Petit mal epilepsy [Recovered/Resolved]
  - Epilepsy [Unknown]
